FAERS Safety Report 9465276 (Version 1)
Quarter: 2013Q3

REPORT INFORMATION
  Report Type: Spontaneous
  Country: FR (occurrence: FR)
  Receive Date: 20130819
  Receipt Date: 20130819
  Transmission Date: 20140515
  Serious: Yes (Life-Threatening)
  Sender: FDA-Public Use
  Company Number: PHHY2013FR088958

PATIENT
  Age: 55 Year
  Sex: Male

DRUGS (5)
  1. AMOXICILLIN SODIUM+POTASSIUM CLAVULANATE SANDOZ [Suspect]
     Indication: LUNG DISORDER
     Dosage: 3 G, QD
     Route: 042
     Dates: start: 20130422, end: 20130501
  2. HEPARIN SODIUM [Suspect]
     Indication: ISCHAEMIC STROKE
     Dosage: 30000 IU, QD
     Route: 042
     Dates: start: 20130421, end: 20130501
  3. INEXIUM//ESOMEPRAZOLE SODIUM [Suspect]
     Indication: PRODUCT USED FOR UNKNOWN INDICATION
     Dosage: 40 MG, QD
     Route: 048
     Dates: start: 20130426, end: 20130430
  4. PROZAC [Suspect]
     Indication: PRODUCT USED FOR UNKNOWN INDICATION
     Dosage: 20 MG, QD
     Route: 048
     Dates: start: 20130426, end: 20130503
  5. DIFFU K [Suspect]
     Indication: HYPOKALAEMIA
     Dosage: 1800 MG, QD
     Route: 048
     Dates: start: 20130427, end: 20130430

REACTIONS (3)
  - Melaena [Recovered/Resolved]
  - Anaemia [Recovered/Resolved]
  - Hypotension [Recovered/Resolved]
